FAERS Safety Report 9057270 (Version 1)
Quarter: 2013Q1

REPORT INFORMATION
  Report Type: Report from Study
  Country: JP (occurrence: JP)
  Receive Date: 20130131
  Receipt Date: 20130131
  Transmission Date: 20140127
  Serious: Yes (Other)
  Sender: FDA-Public Use
  Company Number: JP-GLAXOSMITHKLINE-B0860309A

PATIENT
  Age: 33 None
  Sex: Female
  Weight: 53 kg

DRUGS (6)
  1. TYKERB [Suspect]
     Indication: BREAST CANCER
     Route: 048
     Dates: start: 20101028, end: 20101209
  2. XELODA [Suspect]
     Route: 048
     Dates: start: 20101028, end: 20101201
  3. ABRAXANE [Concomitant]
     Route: 042
     Dates: start: 20110107, end: 20110203
  4. ABRAXANE [Concomitant]
     Route: 042
     Dates: start: 20110203, end: 20110709
  5. TRASTUZUMAB [Concomitant]
     Route: 042
     Dates: start: 20110203, end: 20110709
  6. UNKNOWN DRUG [Concomitant]
     Route: 042
     Dates: start: 20110811, end: 20110818

REACTIONS (2)
  - Enterocolitis [Recovering/Resolving]
  - Hepatic function abnormal [Not Recovered/Not Resolved]
